FAERS Safety Report 7748940-X (Version None)
Quarter: 2011Q3

REPORT INFORMATION
  Report Type: 
  Country: None (occurrence: None)
  Receive Date: 20110909
  Receipt Date: 20110831
  Transmission Date: 20111222
  Serious: Yes (Other)
  Sender: FDA-Public Use
  Company Number: DSA_47556_2011

PATIENT
  Sex: Male

DRUGS (10)
  1. RAMIPRIL [Concomitant]
  2. PLAVIX [Concomitant]
  3. DIAPREL [Concomitant]
  4. METFORMAX [Concomitant]
  5. DILTIAZEM HYDROCHLORIDE [Suspect]
     Indication: MYOCARDIAL INFARCTION
     Dosage: (240 MG, FREQUENCY UNKNOWN ORAL)
     Route: 048
     Dates: start: 20110701, end: 20110724
  6. AMLODIPINE [Concomitant]
  7. MONONIT [Concomitant]
  8. ACARD [Concomitant]
  9. BISOPROLOL FUMARATE [Concomitant]
  10. ATORVASTATIN [Suspect]
     Indication: MYOCARDIAL INFARCTION
     Dosage: (40 MG FREQUENCY UNKNOWN ORAL)
     Route: 048
     Dates: start: 20110701, end: 20110724

REACTIONS (2)
  - BLOOD CREATINE PHOSPHOKINASE INCREASED [None]
  - MYALGIA [None]
